FAERS Safety Report 5802095-7 (Version None)
Quarter: 2008Q3

REPORT INFORMATION
  Report Type: 
  Country: None (occurrence: None)
  Receive Date: 20080707
  Receipt Date: 20080627
  Transmission Date: 20090109
  Serious: Yes (Other)
  Sender: FDA-Public Use
  Company Number: PHBS2007IE20295

PATIENT
  Sex: Male
  Weight: 78 kg

DRUGS (12)
  1. CLOZARIL [Suspect]
     Indication: MENTAL DISORDER
     Dosage: 100 MG, ONCE/SINGLE
     Route: 048
  2. THIAMINE [Concomitant]
     Dosage: 10 MG, UNK
  3. AKINETON [Concomitant]
     Dosage: 4 MG, UNK
  4. CIPRAMIL [Concomitant]
     Dosage: 10 MG, UNK
  5. SERETIDE [Concomitant]
  6. BISOPROLOL FUMARATE [Concomitant]
     Dosage: 2.5 MG, UNK
  7. IMDUR [Concomitant]
     Dosage: 20 MG, UNK
  8. NU-SEALS ASPIRIN [Concomitant]
     Dosage: 75 MG, UNK
  9. NEXIUM [Concomitant]
     Dosage: 40 MG, UNK
  10. HALOPERIDOL [Concomitant]
     Dosage: 1.5 MG, UNK
  11. DIAZEPAM [Concomitant]
     Dosage: 5 MG, UNK
  12. RISPERIDONE [Concomitant]
     Dosage: 50 MG UNK

REACTIONS (2)
  - MEDICATION ERROR [None]
  - SOMNOLENCE [None]
